FAERS Safety Report 4822344-1 (Version None)
Quarter: 2005Q4

REPORT INFORMATION
  Report Type: 
  Country: None (occurrence: None)
  Receive Date: 20051103
  Receipt Date: 20050830
  Transmission Date: 20060501
  Serious: Yes (Other)
  Sender: FDA-Public Use
  Company Number: 200511700BBE

PATIENT
  Age: 30 Year
  Sex: Female

DRUGS (4)
  1. GAMIMUNE N 10% [Suspect]
     Dosage: INTRAVENOUS
     Route: 042
     Dates: start: 20050802
  2. GAMIMUNE N 10% [Suspect]
     Dosage: INTRAVENOUS
     Route: 042
     Dates: start: 20050802
  3. GAMIMUNE N 10% [Suspect]
  4. BENADRYL                        ^ACHE^ [Concomitant]

REACTIONS (10)
  - CHILLS [None]
  - DIARRHOEA [None]
  - FATIGUE [None]
  - NAUSEA [None]
  - PHARYNGOLARYNGEAL PAIN [None]
  - PYREXIA [None]
  - SENSORY DISTURBANCE [None]
  - SYNCOPE [None]
  - TACHYCARDIA [None]
  - VOMITING [None]
